FAERS Safety Report 19854349 (Version 1)
Quarter: 2021Q3

REPORT INFORMATION
  Report Type: Spontaneous
  Country: RO (occurrence: RO)
  Receive Date: 20210920
  Receipt Date: 20210920
  Transmission Date: 20211014
  Serious: Yes (Other)
  Sender: FDA-Public Use
  Company Number: RO-ROCHE-2909747

PATIENT
  Age: 68 Year
  Sex: Female

DRUGS (2)
  1. PERJETA [Suspect]
     Active Substance: PERTUZUMAB
     Indication: PRODUCT USED FOR UNKNOWN INDICATION
     Route: 065
  2. HERCEPTIN [Suspect]
     Active Substance: TRASTUZUMAB
     Indication: PRODUCT USED FOR UNKNOWN INDICATION
     Route: 065

REACTIONS (9)
  - Hyperglycaemia [Unknown]
  - Peripheral sensory neuropathy [Unknown]
  - Respiratory failure [Unknown]
  - Stomatitis [Unknown]
  - Dehydration [Unknown]
  - Anaemia [Unknown]
  - Atrial fibrillation [Unknown]
  - COVID-19 [Unknown]
  - Off label use [Unknown]
